FAERS Safety Report 6662586-6 (Version None)
Quarter: 2010Q1

REPORT INFORMATION
  Report Type: 
  Country: None (occurrence: None)
  Receive Date: 20100329
  Receipt Date: 20100318
  Transmission Date: 20100710
  Serious: Yes (Death, Life-Threatening)
  Sender: FDA-Public Use
  Company Number: A-CH2010-35035

PATIENT
  Age: 28 Year
  Sex: Male
  Weight: 62 kg

DRUGS (10)
  1. TRACLEER [Suspect]
     Indication: PULMONARY ARTERIAL HYPERTENSION
     Dosage: 125 MG, BID, ORAL ; 62.5 MG, BID, ORAL
     Route: 048
     Dates: start: 20070918, end: 20071113
  2. TRACLEER [Suspect]
     Indication: PULMONARY ARTERIAL HYPERTENSION
     Dosage: 125 MG, BID, ORAL ; 62.5 MG, BID, ORAL
     Route: 048
     Dates: start: 20071114, end: 20080610
  3. BERAPROST SODIUM (BERAPROST SODIUM) [Concomitant]
  4. FUROSEMIDE [Concomitant]
  5. SPIRONOLACTONE [Concomitant]
  6. DIGOXIN [Concomitant]
  7. PIMOBENDAN (PIMOBENDAN) [Concomitant]
  8. PROPRANOLOL HYDROCHLORIDE [Concomitant]
  9. ENALAPRIL MALEATE [Concomitant]
  10. OXYGEN (OXYGEN) [Concomitant]

REACTIONS (1)
  - PERICARDITIS [None]
